FAERS Safety Report 7257219-4 (Version None)
Quarter: 2011Q1

REPORT INFORMATION
  Report Type: 
  Country: None (occurrence: None)
  Receive Date: 20110129
  Receipt Date: 20100701
  Transmission Date: 20110831
  Serious: No
  Sender: FDA-Public Use
  Company Number: US-ABBOTT-10P-163-0654982-00

PATIENT
  Age: 51 Year
  Sex: Female

DRUGS (15)
  1. CELEBREX [Concomitant]
     Indication: ARTHRITIS
  2. XIFAXAN [Concomitant]
     Indication: GASTRIC DISORDER
  3. LUNESTA [Concomitant]
     Indication: INSOMNIA
  4. HUMIRA [Suspect]
     Indication: SJOGREN'S SYNDROME
     Dates: start: 20100401
  5. RESTASIS [Concomitant]
     Indication: SJOGREN'S SYNDROME
  6. ACIPHEX [Concomitant]
     Indication: ARTHRITIS
  7. SINGULAIR [Concomitant]
     Indication: PRODUCT USED FOR UNKNOWN INDICATION
  8. XYZAL [Concomitant]
     Indication: HYPERSENSITIVITY
  9. EVOXAC [Concomitant]
     Indication: SJOGREN'S SYNDROME
  10. NORVASC [Concomitant]
     Indication: PRODUCT USED FOR UNKNOWN INDICATION
  11. HUMIRA [Suspect]
     Indication: ARTHRITIS
  12. ARAVA [Concomitant]
     Indication: ARTHRITIS
  13. RECLAST [Concomitant]
     Indication: OSTEOPENIA
  14. ADDERALL 10 [Concomitant]
     Indication: PRODUCT USED FOR UNKNOWN INDICATION
  15. SYNTHROID [Concomitant]
     Indication: HYPOTHYROIDISM

REACTIONS (2)
  - INJECTION SITE HAEMATOMA [None]
  - INJECTION SITE NODULE [None]
